FAERS Safety Report 5846145-0 (Version None)
Quarter: 2008Q3

REPORT INFORMATION
  Report Type: 
  Country: None (occurrence: None)
  Receive Date: 20080814
  Receipt Date: 20080804
  Transmission Date: 20090109
  Serious: Yes (Other)
  Sender: FDA-Public Use
  Company Number: IT-PFIZER INC-2008065791

PATIENT
  Age: 81 Year
  Sex: Female

DRUGS (4)
  1. LINEZOLID [Suspect]
     Indication: INTERVERTEBRAL DISCITIS
     Route: 042
  2. ISONIAZID [Suspect]
  3. RIFAMPIN [Concomitant]
  4. ETHAMBUTOL HCL [Concomitant]

REACTIONS (6)
  - ANAEMIA [None]
  - LACTIC ACIDOSIS [None]
  - NAUSEA [None]
  - NORMOCHROMIC NORMOCYTIC ANAEMIA [None]
  - OESOPHAGITIS [None]
  - VOMITING [None]
